FAERS Safety Report 7888287-4 (Version None)
Quarter: 2011Q4

REPORT INFORMATION
  Report Type: 
  Country: None (occurrence: None)
  Receive Date: 20111103
  Receipt Date: 20111028
  Transmission Date: 20120403
  Serious: Yes (Death, Other)
  Sender: FDA-Public Use
  Company Number: JP-BAYER-2011-093800

PATIENT
  Age: 85 Year
  Sex: Male

DRUGS (9)
  1. ASEMIPEARL [Concomitant]
     Indication: HYPERTENSION
     Dosage: 25 MG, QD
     Route: 048
     Dates: end: 20100920
  2. LIVACT [Concomitant]
     Indication: HEPATIC CIRRHOSIS
     Dosage: 4.15 G, TID
     Route: 048
     Dates: end: 20100920
  3. FENTANYL-100 [Concomitant]
     Indication: PAIN MANAGEMENT
     Dosage: UNK
     Route: 062
     Dates: start: 20111007
  4. NIFELAT L [Concomitant]
     Indication: HYPERTENSION
     Dosage: 20 MG, QD
     Route: 048
     Dates: end: 20100920
  5. TRAMACET [PARACETAMOL,TRAMADOL HYDROCHLORIDE] [Concomitant]
  6. MIRIPLA [Concomitant]
     Indication: ANGIOGRAM
     Dosage: DAILY DOSE 60 MG
     Route: 013
     Dates: start: 20110829, end: 20110829
  7. NEXAVAR [Suspect]
     Indication: HEPATIC NEOPLASM MALIGNANT
     Dosage: 400 MG, QD
     Route: 048
     Dates: start: 20110907, end: 20110917
  8. URSO 250 [Concomitant]
     Indication: HEPATIC CIRRHOSIS
     Dosage: 100 MG, TID
     Route: 048
     Dates: end: 20100920
  9. TRAMACET [PARACETAMOL,TRAMADOL HYDROCHLORIDE] [Concomitant]
     Indication: PAIN
     Dosage: DAILY DOSE 8 DF
     Route: 048
     Dates: start: 20100828, end: 20100920

REACTIONS (5)
  - SEPSIS [None]
  - INTERSTITIAL LUNG DISEASE [None]
  - HYPERTENSION [None]
  - DIARRHOEA [None]
  - DISSEMINATED INTRAVASCULAR COAGULATION [None]
